FAERS Safety Report 9955238 (Version 2)
Quarter: 2014Q1

REPORT INFORMATION
  Report Type: Spontaneous
  Country: US (occurrence: US)
  Receive Date: 20140304
  Receipt Date: 20140307
  Transmission Date: 20141002
  Serious: No
  Sender: FDA-Public Use
  Company Number: US-BAYER-2014-028164

PATIENT
  Age: 83 Year
  Sex: Male
  Weight: 95 kg

DRUGS (2)
  1. ALEVE TABLET [Suspect]
     Dosage: 1 DF, PRN
     Route: 048
     Dates: start: 201402
  2. LEVOTHYROXINE [Concomitant]

REACTIONS (3)
  - Regurgitation [Recovered/Resolved]
  - Drug ineffective [None]
  - Intentional drug misuse [None]
